FAERS Safety Report 8277867-2 (Version None)
Quarter: 2012Q2

REPORT INFORMATION
  Report Type: 
  Country: None (occurrence: None)
  Receive Date: 20120412
  Receipt Date: 20120405
  Transmission Date: 20120825
  Serious: Yes (Death, Life-Threatening, Other)
  Sender: FDA-Public Use
  Company Number: FR-PFIZER INC-2012085903

PATIENT
  Age: 62 Year
  Sex: Male

DRUGS (2)
  1. SOLU-MEDROL [Suspect]
     Indication: B-CELL LYMPHOMA
     Dosage: 120 MG, UNK
     Route: 042
     Dates: start: 20111228, end: 20120106
  2. ZOFRAN [Concomitant]

REACTIONS (3)
  - CARDIAC ARREST [None]
  - DEATH [None]
  - TUMOUR LYSIS SYNDROME [None]
